FAERS Safety Report 7630245-9 (Version None)
Quarter: 2011Q3

REPORT INFORMATION
  Report Type: 
  Country: None (occurrence: None)
  Receive Date: 20110722
  Receipt Date: 20110712
  Transmission Date: 20111222
  Serious: Yes (Hospitalization, Congenital Anomaly, Other)
  Sender: FDA-Public Use
  Company Number: US-PFIZER INC-2010092584

PATIENT
  Sex: Female
  Weight: 2 kg

DRUGS (7)
  1. PULMICORT [Concomitant]
     Dosage: 180 UG, UNK
     Route: 064
  2. PRENATAL VITAMINS [Concomitant]
     Dosage: UNK
     Route: 064
  3. ZOLOFT [Suspect]
     Dosage: 50 MG, UNK
     Route: 064
     Dates: start: 20061219
  4. ZYRTEC [Concomitant]
     Dosage: UNK
     Route: 064
  5. ZOLOFT [Suspect]
     Dosage: 25 MG, 1X/DAY
     Route: 064
     Dates: start: 20061201
  6. ZOLOFT [Suspect]
     Dosage: 100 MG, UNK
     Route: 064
     Dates: start: 20071015
  7. ZOLOFT [Suspect]
     Dosage: 100 MG, HALF TABLET DAILY
     Route: 064
     Dates: start: 20081017

REACTIONS (15)
  - MATERNAL EXPOSURE DURING PREGNANCY [None]
  - PATENT DUCTUS ARTERIOSUS [None]
  - HYDRONEPHROSIS [None]
  - PULMONARY HYPERTENSION [None]
  - PULMONARY OEDEMA [None]
  - CARDIOMEGALY [None]
  - VENTRICULAR SEPTAL DEFECT [None]
  - PULMONARY ARTERY STENOSIS CONGENITAL [None]
  - PULMONARY VASCULAR DISORDER [None]
  - VENTRICULAR HYPOPLASIA [None]
  - HEART DISEASE CONGENITAL [None]
  - SUPRAVALVULAR AORTIC STENOSIS [None]
  - ATRIAL SEPTAL DEFECT [None]
  - JAUNDICE [None]
  - SINGLE UMBILICAL ARTERY [None]
